FAERS Safety Report 15772200 (Version 1)
Quarter: 2018Q4

REPORT INFORMATION
  Report Type: Spontaneous
  Country: AU (occurrence: AU)
  Receive Date: 20181228
  Receipt Date: 20181228
  Transmission Date: 20190205
  Serious: Yes (Other)
  Sender: FDA-Public Use
  Company Number: AU-SA-2016SA221875

PATIENT
  Age: 21 Year
  Sex: Male

DRUGS (1)
  1. LARONIDASE [Suspect]
     Active Substance: LARONIDASE
     Indication: MUCOPOLYSACCHARIDOSIS I
     Dosage: 0.58 MG/KG FOR 8.75 YEARS
     Route: 065

REACTIONS (4)
  - Corneal opacity [Unknown]
  - Retinal degeneration [Unknown]
  - Maculopathy [Not Recovered/Not Resolved]
  - Retinal disorder [Unknown]
